FAERS Safety Report 10508769 (Version 3)
Quarter: 2014Q4

REPORT INFORMATION
  Report Type: Report from Study
  Country: US (occurrence: US)
  Receive Date: 20141009
  Receipt Date: 20141128
  Transmission Date: 20150528
  Serious: Yes (Hospitalization)
  Sender: FDA-Public Use
  Company Number: US-JNJFOC-20141003988

PATIENT
  Age: 17 Year
  Sex: Male
  Weight: 60 kg

DRUGS (6)
  1. HUMIRA [Concomitant]
     Active Substance: ADALIMUMAB
     Route: 065
     Dates: start: 20100109
  2. 5-ASA [Concomitant]
     Active Substance: MESALAMINE
     Route: 048
  3. PROBIOTICS [Concomitant]
     Active Substance: PROBIOTICS NOS
     Route: 065
  4. BUDESONIDE. [Concomitant]
     Active Substance: BUDESONIDE
     Route: 065
  5. REMICADE [Suspect]
     Active Substance: INFLIXIMAB
     Indication: COLITIS ULCERATIVE
     Route: 042
     Dates: start: 20060122
  6. PREDNISONE. [Concomitant]
     Active Substance: PREDNISONE
     Route: 065

REACTIONS (1)
  - Colitis ulcerative [Recovered/Resolved]

NARRATIVE: CASE EVENT DATE: 20140831
